FAERS Safety Report 18338975 (Version 1)
Quarter: 2020Q3

REPORT INFORMATION
  Report Type: Spontaneous
  Country: US (occurrence: US)
  Receive Date: 20200930
  Receipt Date: 20200930
  Transmission Date: 20201103
  Serious: Yes (Hospitalization)
  Sender: FDA-Public Use
  Company Number: None

PATIENT
  Age: 50 Year
  Sex: Male
  Weight: 105.69 kg

DRUGS (1)
  1. AZATHIOPRINE (AZATHIOPRINE 50MG TAB) [Suspect]
     Active Substance: AZATHIOPRINE
     Indication: CROHN^S DISEASE
     Route: 048
     Dates: start: 20200625, end: 20200716

REACTIONS (3)
  - Leukocytosis [None]
  - Pancreatitis acute [None]
  - Pyrexia [None]

NARRATIVE: CASE EVENT DATE: 20200709
